FAERS Safety Report 7307551-0 (Version None)
Quarter: 2011Q1

REPORT INFORMATION
  Report Type: 
  Country: None (occurrence: None)
  Receive Date: 20110119
  Receipt Date: 20100916
  Transmission Date: 20110831
  Serious: Yes (Other)
  Sender: FDA-Public Use
  Company Number: A-US2010-38060

PATIENT
  Age: 45 Year
  Sex: Female

DRUGS (2)
  1. TRACLEER [Suspect]
     Indication: PULMONARY ARTERIAL HYPERTENSION
     Dosage: 62.5 MG, BID, ORAL, 125 MG, BID, ORAL
     Route: 048
     Dates: start: 20091016, end: 20091101
  2. TRACLEER [Suspect]
     Indication: PULMONARY ARTERIAL HYPERTENSION
     Dosage: 62.5 MG, BID, ORAL, 125 MG, BID, ORAL
     Route: 048
     Dates: start: 20091101, end: 20100801

REACTIONS (2)
  - CONDITION AGGRAVATED [None]
  - ABDOMINAL PAIN [None]
